FAERS Safety Report 9146215 (Version 1)
Quarter: 2013Q1

REPORT INFORMATION
  Report Type: Spontaneous
  Country: US (occurrence: None)
  Receive Date: 20130227
  Receipt Date: 20130227
  Transmission Date: 20140127
  Serious: Yes (Other)
  Sender: FDA-Public Use
  Company Number: None

PATIENT
  Sex: Male
  Weight: 108.2 kg

DRUGS (1)
  1. FENTANYL [Suspect]
     Indication: PAIN
     Dosage: 1 PATCH EVERY 48 HOURS. TRANSDERMAL
     Route: 062
     Dates: start: 20130201, end: 20130220

REACTIONS (2)
  - Drug ineffective [None]
  - Product quality issue [None]
